FAERS Safety Report 16658568 (Version 1)
Quarter: 2019Q3

REPORT INFORMATION
  Report Type: Spontaneous
  Country: GB (occurrence: GB)
  Receive Date: 20190801
  Receipt Date: 20190801
  Transmission Date: 20191004
  Serious: Yes (Other)
  Sender: FDA-Public Use
  Company Number: GB-MYLANLABS-2018M1085792

PATIENT
  Age: 67 Year
  Sex: Male

DRUGS (5)
  1. VORICONAZOLE. [Suspect]
     Active Substance: VORICONAZOLE
     Indication: PRODUCT USED FOR UNKNOWN INDICATION
     Dosage: UNK
  2. VORICONAZOLE. [Suspect]
     Active Substance: VORICONAZOLE
     Indication: OSTEOMYELITIS FUNGAL
     Dosage: 300 MG, BID
  3. VORICONAZOLE. [Suspect]
     Active Substance: VORICONAZOLE
     Indication: OSTEOMYELITIS
     Dosage: 300 MILLIGRAM, QD (GRADUALLY INCREASED TO ITS MAXIMUM DOSE TWICE DAILY)
     Dates: start: 201301
  4. INSULIN [Concomitant]
     Active Substance: INSULIN NOS
     Indication: TYPE 2 DIABETES MELLITUS
     Dosage: UNK
  5. VORICONAZOLE. [Suspect]
     Active Substance: VORICONAZOLE
     Indication: STENOSIS
     Dosage: 600 MG, QD,300 MG, 2X/DAY (INCREASED TO ITS MAXIMUM DOSE)
     Dates: start: 201301

REACTIONS (8)
  - Periostitis [Recovering/Resolving]
  - Paraesthesia [Unknown]
  - Product use in unapproved indication [Unknown]
  - Osteitis deformans [Unknown]
  - Neck pain [Unknown]
  - Peripheral swelling [Unknown]
  - Cervical spinal stenosis [Unknown]
  - Myalgia [Unknown]

NARRATIVE: CASE EVENT DATE: 201308
